FAERS Safety Report 21543683 (Version 1)
Quarter: 2022Q4

REPORT INFORMATION
  Report Type: Spontaneous
  Country: US (occurrence: US)
  Receive Date: 20221102
  Receipt Date: 20221102
  Transmission Date: 20230113
  Serious: No
  Sender: FDA-Public Use
  Company Number: US-JNJFOC-20221035319

PATIENT
  Age: 76 Year
  Sex: Female
  Weight: 64.468 kg

DRUGS (17)
  1. RISPERDAL [Suspect]
     Active Substance: RISPERIDONE
     Indication: Product used for unknown indication
     Dosage: TAPERED OFF OVER 2 WEEKS, WHILE CROSS TAPERED TO CAPLYTA  08/--/2022
     Route: 065
     Dates: start: 2022
  2. RISPERDAL [Suspect]
     Active Substance: RISPERIDONE
     Dosage: 08/--/2022
     Route: 065
  3. CAPLYTA [Suspect]
     Active Substance: LUMATEPERONE
     Indication: Schizophrenia
     Route: 048
     Dates: start: 20220808, end: 20220822
  4. COGENTIN [Concomitant]
     Active Substance: BENZTROPINE MESYLATE
     Indication: Product used for unknown indication
  5. HYDROCHLOROTHIAZIDE [Concomitant]
     Active Substance: HYDROCHLOROTHIAZIDE
     Indication: Product used for unknown indication
  6. PRAZOSIN [Concomitant]
     Active Substance: PRAZOSIN
  7. VALSARTAN [Concomitant]
     Active Substance: VALSARTAN
  8. TRAZODONE [Concomitant]
     Active Substance: TRAZODONE HYDROCHLORIDE
  9. LIPITOR [Concomitant]
     Active Substance: ATORVASTATIN CALCIUM
  10. DEXILANT [Concomitant]
     Active Substance: DEXLANSOPRAZOLE
  11. LEXAPRO [Concomitant]
     Active Substance: ESCITALOPRAM OXALATE
  12. VASCEPA [Concomitant]
     Active Substance: ICOSAPENT ETHYL
  13. FOSAMAX [Concomitant]
     Active Substance: ALENDRONATE SODIUM
  14. ASPIRIN [Concomitant]
     Active Substance: ASPIRIN
  15. VITAMIN D2 [Concomitant]
     Active Substance: ERGOCALCIFEROL
  16. BETHANECHOL [Concomitant]
     Active Substance: BETHANECHOL
  17. WILD SALMON [Concomitant]
     Dosage: 340-1000 MG

REACTIONS (4)
  - Psychotic disorder [Recovered/Resolved]
  - Drug withdrawal syndrome [Recovering/Resolving]
  - Akathisia [Recovered/Resolved]
  - Dyskinesia [Unknown]
